FAERS Safety Report 8108357-5 (Version None)
Quarter: 2012Q1

REPORT INFORMATION
  Report Type: 
  Country: None (occurrence: None)
  Receive Date: 20120202
  Receipt Date: 20120126
  Transmission Date: 20120608
  Serious: Yes (Other)
  Sender: FDA-Public Use
  Company Number: PHEH2011US06747

PATIENT
  Age: 80 Year
  Sex: Female
  Weight: 69.388 kg

DRUGS (4)
  1. RECLAST [Suspect]
     Indication: OSTEOPOROSIS
     Dosage: UNK UKN, UNK
     Route: 042
     Dates: start: 20101015
  2. METHOTREXATE [Concomitant]
     Dosage: UNK UKN, UNK
  3. VITAMINS NOS [Concomitant]
     Dosage: UNK UKN, UNK
  4. RECLAST [Suspect]
     Dosage: UNK UKN, UNK
     Route: 042
     Dates: start: 20111021

REACTIONS (4)
  - CONFUSIONAL STATE [None]
  - ARTHROPATHY [None]
  - MYALGIA [None]
  - MUSCULOSKELETAL DISCOMFORT [None]
